FAERS Safety Report 7871231-3 (Version None)
Quarter: 2011Q4

REPORT INFORMATION
  Report Type: 
  Country: None (occurrence: None)
  Receive Date: 20111003
  Receipt Date: 20110712
  Transmission Date: 20120403
  Serious: Yes (Other)
  Sender: FDA-Public Use
  Company Number: 287301USA

PATIENT
  Age: 45 Year
  Sex: Female

DRUGS (1)
  1. FLUOXETINE HCL [Suspect]
     Indication: CONVULSION
     Dosage: (20 MG),ORAL
     Route: 048
     Dates: end: 20100708

REACTIONS (1)
  - CONVULSION [None]
